FAERS Safety Report 8980267 (Version 2)
Quarter: 2013Q1

REPORT INFORMATION
  Report Type: Spontaneous
  Country: GB (occurrence: GB)
  Receive Date: 20121221
  Receipt Date: 20130307
  Transmission Date: 20140127
  Serious: Yes (Hospitalization, Disabling, Other)
  Sender: FDA-Public Use
  Company Number: PHFR2012GB005258

PATIENT
  Age: 30 Year
  Sex: Male
  Weight: 85 kg

DRUGS (8)
  1. CLOZARIL [Suspect]
     Indication: SCHIZOPHRENIA
     Dosage: UNK
     Route: 048
     Dates: start: 20010701
  2. QUETIAPINE [Concomitant]
  3. ARIPIPRAZOLE [Concomitant]
  4. FLUOXETINE [Concomitant]
  5. DIAZEPAM [Concomitant]
  6. ZOMORPH [Concomitant]
  7. CASPOFUNGIN [Concomitant]
  8. RANITIDINE [Concomitant]

REACTIONS (12)
  - Chronic myeloid leukaemia [Not Recovered/Not Resolved]
  - Myeloproliferative disorder [Unknown]
  - Bone disorder [Unknown]
  - Chloroma [Unknown]
  - Haematemesis [Unknown]
  - Schizophrenia [Unknown]
  - Paranoia [Unknown]
  - Obsessive thoughts [Unknown]
  - Anxiety [Unknown]
  - Weight decreased [Unknown]
  - Pain [Unknown]
  - Neutrophil count increased [Not Recovered/Not Resolved]
